FAERS Safety Report 19750524 (Version 2)
Quarter: 2021Q3

REPORT INFORMATION
  Report Type: Spontaneous
  Country: JP (occurrence: JP)
  Receive Date: 20210826
  Receipt Date: 20210914
  Transmission Date: 20211014
  Serious: Yes (Hospitalization)
  Sender: FDA-Public Use
  Company Number: JP-TEVA-2021-JP-1946763

PATIENT
  Age: 58 Year
  Sex: Male
  Weight: 50 kg

DRUGS (9)
  1. AMANTADINE HYDROCHLORIDE. [Concomitant]
     Active Substance: AMANTADINE HYDROCHLORIDE
     Route: 065
  2. ROTIGOTINE [Concomitant]
     Active Substance: ROTIGOTINE
     Route: 065
  3. AZILECT [Suspect]
     Active Substance: RASAGILINE MESYLATE
     Indication: PARKINSON^S DISEASE
     Dosage: 1 MILLIGRAM DAILY;
     Route: 065
  4. TRIHEXYPHENIDYL HYDROCHLORIDE. [Concomitant]
     Active Substance: TRIHEXYPHENIDYL HYDROCHLORIDE
     Route: 065
  5. CARBIDOPA;LEVODOPA [Suspect]
     Active Substance: CARBIDOPA\LEVODOPA
  6. CARBIDOPA;LEVODOPA [Suspect]
     Active Substance: CARBIDOPA\LEVODOPA
     Dosage: 6 ML DAILY;
  7. ISTRADEFYLLINE [Concomitant]
     Active Substance: ISTRADEFYLLINE
  8. ZONISAMIDE. [Concomitant]
     Active Substance: ZONISAMIDE
     Route: 065
  9. CARBIDOPA;LEVODOPA [Suspect]
     Active Substance: CARBIDOPA\LEVODOPA
     Indication: PARKINSON^S DISEASE
     Dosage: 8 ML DAILY;

REACTIONS (4)
  - Parkinsonian gait [Recovered/Resolved]
  - Fall [Recovered/Resolved]
  - Dyskinesia [Recovering/Resolving]
  - Condition aggravated [Recovered/Resolved]
